FAERS Safety Report 16054124 (Version 1)
Quarter: 2019Q1

REPORT INFORMATION
  Report Type: Spontaneous
  Country: GR (occurrence: GR)
  Receive Date: 20190308
  Receipt Date: 20190308
  Transmission Date: 20190418
  Serious: Yes (Hospitalization, Other)
  Sender: FDA-Public Use
  Company Number: GR-GILEAD-2019-0394804

PATIENT
  Age: 34 Year
  Sex: Male

DRUGS (3)
  1. DESCOVY [Suspect]
     Active Substance: EMTRICITABINE\TENOFOVIR ALAFENAMIDE FUMARATE
     Indication: HIV TEST POSITIVE
     Dosage: UNK
     Route: 065
     Dates: start: 20181025
  2. TYBOST [Suspect]
     Active Substance: COBICISTAT
     Indication: HIV TEST POSITIVE
     Dosage: UNK
     Route: 065
     Dates: start: 20181025
  3. DARUNAVIR [Suspect]
     Active Substance: DARUNAVIR
     Indication: HIV TEST POSITIVE
     Dosage: UNK
     Route: 065
     Dates: start: 20181025

REACTIONS (1)
  - Immune reconstitution inflammatory syndrome [Unknown]

NARRATIVE: CASE EVENT DATE: 201811
